FAERS Safety Report 25671125 (Version 1)
Quarter: 2025Q3

REPORT INFORMATION
  Report Type: Spontaneous
  Country: US (occurrence: US)
  Receive Date: 20250812
  Receipt Date: 20250812
  Transmission Date: 20251020
  Serious: Yes (Other)
  Sender: DR REDDYS
  Company Number: US-DRL-USA-USA/2025/08/012050

PATIENT
  Age: 23 Year
  Sex: Male

DRUGS (6)
  1. TACROLIMUS [Suspect]
     Active Substance: TACROLIMUS
     Indication: Still^s disease
  2. CYCLOSPORINE [Suspect]
     Active Substance: CYCLOSPORINE
     Indication: Still^s disease
  3. CANAKINUMAB [Concomitant]
     Active Substance: CANAKINUMAB
     Indication: Still^s disease
  4. ANAKINRA [Concomitant]
     Active Substance: ANAKINRA
     Indication: Still^s disease
  5. TOFACITINIB [Concomitant]
     Active Substance: TOFACITINIB
     Indication: Still^s disease
  6. RUXOLITINIB [Concomitant]
     Active Substance: RUXOLITINIB
     Indication: Still^s disease

REACTIONS (1)
  - Drug ineffective for unapproved indication [Unknown]
